FAERS Safety Report 4779925-3 (Version None)
Quarter: 2005Q3

REPORT INFORMATION
  Report Type: 
  Country: None (occurrence: None)
  Receive Date: 20050914
  Receipt Date: 20050516
  Transmission Date: 20060218
  Serious: Yes (Death, Hospitalization)
  Sender: FDA-Public Use
  Company Number: 163-20785-05050248

PATIENT
  Age: 68 Year
  Sex: Female

DRUGS (22)
  1. THALOMID [Suspect]
     Indication: METASTATIC RENAL CELL CARCINOMA
     Dosage: 50-100MG, DAILY, ORAL
     Route: 048
     Dates: start: 20041001, end: 20050401
  2. THALOMID [Suspect]
  3. METHADONE HCL [Concomitant]
  4. NEURONTIN [Concomitant]
  5. PAMELOR (NORTRIPTYLINE HYDROCHLORIDE) (UNKNOWN) [Concomitant]
  6. COUMADIN [Concomitant]
  7. MONOPRIL (FOSINOPRIL SODIUM) (UNKNOWN) [Concomitant]
  8. ALLOPURINOL (ALLOPURINOL) (UNKNOWN) [Concomitant]
  9. PROTONIX (PANTOPRAZOLE) (UNKNOWN) [Concomitant]
  10. ZOLOFT [Concomitant]
  11. TUMS (CALCIUM CARBONATE) (UNKNOWN) [Concomitant]
  12. INTERFERON (INTERFERON ALFA) (UNKNOWN) [Concomitant]
  13. SENOKOT-S (SENOKOT-S) (UNKNOWN) [Concomitant]
  14. DURICEF (CEFADROXIL) (UNKNOWN) [Concomitant]
  15. HYDROCHLOROTHIAZIDE [Concomitant]
  16. ZOMETA [Concomitant]
  17. ULTRAM (TRAMADOL HYDROCHLORIDE) (UNKNOWN) [Concomitant]
  18. OXYCONTIN [Concomitant]
  19. OSCAL-D (CALCIUM D3 ^STADA^) (UNKNOWN) [Concomitant]
  20. CALCIUM GLUCONATE (CALCIUM GLUCONATE) (UNKNOWN) [Concomitant]
  21. K-DUR (POTASSIUM CHLORIDE) (UNKNOWN) [Concomitant]
  22. LASIX [Concomitant]

REACTIONS (9)
  - ANAEMIA [None]
  - CONSTIPATION [None]
  - DEATH [None]
  - DISEASE PROGRESSION [None]
  - HYPOAESTHESIA [None]
  - HYPONATRAEMIA [None]
  - PARAESTHESIA [None]
  - PATHOLOGICAL FRACTURE [None]
  - PYREXIA [None]
